FAERS Safety Report 4517081-7 (Version None)
Quarter: 2004Q4

REPORT INFORMATION
  Report Type: 
  Country: None (occurrence: None)
  Receive Date: 20041130
  Receipt Date: 20041117
  Transmission Date: 20050328
  Serious: Yes (Death, Life-Threatening)
  Sender: FDA-Public Use
  Company Number: 2004082699

PATIENT
  Age: 83 Year
  Sex: Male

DRUGS (12)
  1. DIFLUCAN [Suspect]
     Indication: CANDIDA PNEUMONIA
     Dosage: 200 MG (200 MG, 1 IN 1 D), INTRAVENOUS
     Route: 042
     Dates: start: 20041013
  2. DIFLUCAN [Suspect]
     Indication: CANDIDA SEPSIS
     Dosage: 200 MG (200 MG, 1 IN 1 D), INTRAVENOUS
     Route: 042
     Dates: start: 20041013
  3. FLOXACILLIN SODIUM [Concomitant]
  4. CEFTAZIDIEM (CEFTAZIDIME) [Concomitant]
  5. NOREPINEPHRINE BITARTRATE (NOREPINEPHRINE BITARTRATE) [Concomitant]
  6. INSULIN [Concomitant]
  7. METHYLPREDNISOLONE [Concomitant]
  8. ESOMEPRAZOLE (ESOMEPRAZOLE) [Concomitant]
  9. DUOVENT (FENOTEROL HYDROBROMIDE, IPRATROPIUM BROMIDE) [Concomitant]
  10. SERETIDE MITE (FLUTICASONE PROPIONATE, SALMETEROL XINAFOATE) [Concomitant]
  11. ACETYLCYSTEINE [Concomitant]
  12. ERYTHROPOIETIN (ERYTHROPOIETIN) [Concomitant]

REACTIONS (2)
  - LIVER DISORDER [None]
  - PROTHROMBIN TIME PROLONGED [None]
